FAERS Safety Report 25956947 (Version 1)
Quarter: 2025Q4

REPORT INFORMATION
  Report Type: Spontaneous
  Country: EU (occurrence: EU)
  Receive Date: 20251024
  Receipt Date: 20251024
  Transmission Date: 20260118
  Serious: Yes (Other)
  Sender: MYLAN
  Company Number: EU-MYLANLABS-2025M1089026

PATIENT
  Sex: Male

DRUGS (4)
  1. TOBRAMYCIN [Suspect]
     Active Substance: TOBRAMYCIN
     Indication: SJS-TEN overlap
     Dosage: UNK UNK, 5XD, EYE DROPS; 5 TIMES A DAY
  2. CYCLOSPORINE [Suspect]
     Active Substance: CYCLOSPORINE
     Indication: SJS-TEN overlap
     Dosage: UNK UNK, BID (EYE DROPS)
  3. DEXAMETHASONE [Suspect]
     Active Substance: DEXAMETHASONE
     Indication: SJS-TEN overlap
     Dosage: UNK, 5XD, EYE DROPS; 5 TIMES A DAY
  4. PREDNISONE [Suspect]
     Active Substance: PREDNISONE
     Indication: SJS-TEN overlap
     Dosage: 60 MILLIGRAM, QD

REACTIONS (1)
  - Drug ineffective [Unknown]
